FAERS Safety Report 21095624 (Version 1)
Quarter: 2022Q3

REPORT INFORMATION
  Report Type: Spontaneous
  Country: US (occurrence: US)
  Receive Date: 20220718
  Receipt Date: 20220718
  Transmission Date: 20221027
  Serious: Yes (Other)
  Sender: FDA-Public Use
  Company Number: None

PATIENT
  Age: 45 Year
  Sex: Male

DRUGS (8)
  1. PREDNISONE [Suspect]
     Active Substance: PREDNISONE
     Indication: Mesenteric panniculitis
     Dosage: LOWERED BELOW 20 MG
     Route: 065
  2. PREDNISONE [Suspect]
     Active Substance: PREDNISONE
     Route: 065
  3. PREDNISONE [Suspect]
     Active Substance: PREDNISONE
     Dosage: RANGED FROM 15 TO 30 MG DAILY
     Route: 065
  4. PREDNISONE [Suspect]
     Active Substance: PREDNISONE
     Dosage: PREDNISONE BELOW 15 MG
     Route: 065
  5. PREDNISONE [Suspect]
     Active Substance: PREDNISONE
     Route: 065
  6. INFLIXIMAB [Concomitant]
     Active Substance: INFLIXIMAB
     Indication: Mesenteric panniculitis
     Dosage: INDUCTION FOLLOWED BY EVERY 8 WEEKS
     Route: 042
  7. USTEKINUMAB [Concomitant]
     Active Substance: USTEKINUMAB
     Indication: Mesenteric panniculitis
     Route: 042
  8. USTEKINUMAB [Concomitant]
     Active Substance: USTEKINUMAB
     Dosage: EVERY 8 WEEKS
     Route: 058

REACTIONS (5)
  - Non-alcoholic steatohepatitis [Unknown]
  - Cataract [Unknown]
  - Diabetes mellitus [Unknown]
  - Osteoporosis [Unknown]
  - Disease recurrence [Recovered/Resolved]
